FAERS Safety Report 24848751 (Version 4)
Quarter: 2025Q4

REPORT INFORMATION
  Report Type: Spontaneous
  Country: US (occurrence: US)
  Receive Date: 20250116
  Receipt Date: 20251006
  Transmission Date: 20260117
  Serious: Yes (Hospitalization)
  Sender: TEVA
  Company Number: US-TEVA-VS-3285096

PATIENT
  Age: 62 Year
  Sex: Male

DRUGS (2)
  1. ISONIAZID [Suspect]
     Active Substance: ISONIAZID
     Indication: Latent tuberculosis
     Route: 065
  2. RIFAMPIN [Suspect]
     Active Substance: RIFAMPIN
     Indication: Latent tuberculosis
     Dosage: RIFAMPIN
     Route: 065

REACTIONS (5)
  - Drug intolerance [Unknown]
  - Diarrhoea [Unknown]
  - Autoimmune hepatitis [Recovered/Resolved]
  - Headache [Unknown]
  - Drug-induced liver injury [Recovered/Resolved]
